FAERS Safety Report 5394201-6 (Version None)
Quarter: 2007Q3

REPORT INFORMATION
  Report Type: 
  Country: None (occurrence: None)
  Receive Date: 20070723
  Receipt Date: 20070411
  Transmission Date: 20080115
  Serious: No
  Sender: FDA-Public Use
  Company Number: A0646810A

PATIENT
  Age: 73 Year
  Sex: Female

DRUGS (6)
  1. AVANDIA [Suspect]
     Dosage: 4MG PER DAY
     Route: 048
     Dates: start: 20060101
  2. DIOVAN [Suspect]
     Indication: HYPERTENSION
     Dosage: 80MG PER DAY
     Route: 048
     Dates: start: 20060101
  3. UNSPECIFIED MEDICATION [Suspect]
     Indication: DRUG USE FOR UNKNOWN INDICATION
     Route: 048
     Dates: start: 20061201, end: 20061201
  4. INSULIN [Concomitant]
  5. UNKNOWN DRUG [Concomitant]
  6. HERBAL PRODUCT [Concomitant]

REACTIONS (9)
  - BLISTER [None]
  - DIZZINESS [None]
  - DRUG INEFFECTIVE [None]
  - DYSPNOEA [None]
  - FLUID RETENTION [None]
  - MUSCLE SPASMS [None]
  - OEDEMA PERIPHERAL [None]
  - SKIN ULCER [None]
  - VISUAL DISTURBANCE [None]
